FAERS Safety Report 19292016 (Version 2)
Quarter: 2021Q3

REPORT INFORMATION
  Report Type: Spontaneous
  Country: US (occurrence: US)
  Receive Date: 20210524
  Receipt Date: 20210712
  Transmission Date: 20211014
  Serious: Yes (Hospitalization, Other)
  Sender: FDA-Public Use
  Company Number: US-HIKMA PHARMACEUTICALS USA INC.-US-H14001-21-02319

PATIENT
  Age: 12 Year
  Sex: Male
  Weight: 67.1 kg

DRUGS (7)
  1. MERCAPTOPURINE. [Suspect]
     Active Substance: MERCAPTOPURINE
     Dosage: SAT?SUN
     Route: 048
     Dates: start: 20210408
  2. CYTARABINE. [Suspect]
     Active Substance: CYTARABINE
     Indication: ACUTE LYMPHOCYTIC LEUKAEMIA
     Dosage: DAYS 1?4, 8?11, 29?32, 36?39
     Route: 042
     Dates: start: 20210408
  3. MERCAPTOPURINE. [Suspect]
     Active Substance: MERCAPTOPURINE
     Indication: ACUTE LYMPHOCYTIC LEUKAEMIA
     Dosage: MON?FRI
     Route: 048
     Dates: start: 20210408
  4. METHOTREXATE. [Suspect]
     Active Substance: METHOTREXATE
     Indication: ACUTE LYMPHOCYTIC LEUKAEMIA
     Dosage: DAY 1
     Route: 037
     Dates: start: 20210408, end: 20210415
  5. INCB018424 [Suspect]
     Active Substance: RUXOLITINIB
     Indication: ACUTE LYMPHOCYTIC LEUKAEMIA
     Dosage: DAYS 1?14 AND 29?42
     Route: 048
     Dates: start: 20210408
  6. LEXAPRO [Concomitant]
     Active Substance: ESCITALOPRAM OXALATE
     Indication: PRODUCT USED FOR UNKNOWN INDICATION
     Dosage: UNKNOWN
     Route: 065
     Dates: start: 20210326
  7. CYCLOPHOSPHAMIDE. [Suspect]
     Active Substance: CYCLOPHOSPHAMIDE
     Indication: ACUTE LYMPHOCYTIC LEUKAEMIA
     Route: 042
     Dates: start: 20210408

REACTIONS (16)
  - Head titubation [Unknown]
  - Tremor [Unknown]
  - Electrocardiogram delta waves abnormal [Unknown]
  - Encephalopathy [Recovering/Resolving]
  - Electroencephalogram abnormal [Unknown]
  - Atrophy [Unknown]
  - Temporal lobe epilepsy [Unknown]
  - Mental status changes [Unknown]
  - Epilepsy [Unknown]
  - Hippocampal sclerosis [Unknown]
  - Neurotoxicity [Unknown]
  - Electrocardiogram T wave peaked [Unknown]
  - Hallucination, visual [Unknown]
  - Seizure [Unknown]
  - Eye movement disorder [Unknown]
  - Adrenal disorder [Unknown]

NARRATIVE: CASE EVENT DATE: 20210414
